FAERS Safety Report 19061432 (Version 1)
Quarter: 2021Q1

REPORT INFORMATION
  Report Type: Spontaneous
  Country: US (occurrence: US)
  Receive Date: 20210326
  Receipt Date: 20210326
  Transmission Date: 20210420
  Serious: Yes (Other)
  Sender: FDA-Public Use
  Company Number: US-AIZANT-2021AIZANTLIT00025

PATIENT
  Age: 42 Year
  Sex: Male

DRUGS (2)
  1. ALBUTEROL. [Suspect]
     Active Substance: ALBUTEROL
     Indication: COVID-19
     Route: 065
  2. GUIAFENASIN [Suspect]
     Active Substance: GUAIFENESIN
     Indication: COVID-19

REACTIONS (1)
  - Drug ineffective [Unknown]
